FAERS Safety Report 23466995 (Version 3)
Quarter: 2025Q2

REPORT INFORMATION
  Report Type: Spontaneous
  Country: JP (occurrence: JP)
  Receive Date: 20240201
  Receipt Date: 20250422
  Transmission Date: 20250716
  Serious: Yes (Other)
  Sender: ALEXION PHARMACEUTICALS
  Company Number: 2024A022073

PATIENT
  Age: 75 Year
  Weight: 66 kg

DRUGS (5)
  1. LYNPARZA [Suspect]
     Active Substance: OLAPARIB
     Indication: Ovarian cancer
     Dosage: 400 MILLIGRAM, BID
  2. LYNPARZA [Suspect]
     Active Substance: OLAPARIB
     Indication: Fallopian tube cancer
     Dosage: 600 MILLIGRAM, QD
  3. AVASTIN [Concomitant]
     Active Substance: BEVACIZUMAB
     Indication: Ovarian cancer
     Route: 065
  4. AVASTIN [Concomitant]
     Active Substance: BEVACIZUMAB
     Indication: Fallopian tube cancer
  5. BEVACIZUMAB [Concomitant]
     Active Substance: BEVACIZUMAB
     Indication: Fallopian tube cancer
     Route: 065

REACTIONS (1)
  - Interstitial lung disease [Recovered/Resolved]
